FAERS Safety Report 10672118 (Version 5)
Quarter: 2018Q1

REPORT INFORMATION
  Report Type: Report from Study
  Country: US (occurrence: US)
  Receive Date: 20141223
  Receipt Date: 20180116
  Transmission Date: 20180508
  Serious: Yes (Hospitalization)
  Sender: FDA-Public Use
  Company Number: PHEH2014US004956

PATIENT
  Age: 32 Year
  Sex: Male

DRUGS (2)
  1. HECORIA [Suspect]
     Active Substance: TACROLIMUS
     Indication: LIVER TRANSPLANT
     Dosage: 10 DF, BID
     Route: 048
  2. MYFORTIC [Suspect]
     Active Substance: MYCOPHENOLATE SODIUM
     Indication: LIVER TRANSPLANT
     Dosage: 2 DF, BID
     Route: 048

REACTIONS (2)
  - Blood count abnormal [Unknown]
  - Liver transplant rejection [Unknown]

NARRATIVE: CASE EVENT DATE: 20140227
